FAERS Safety Report 13421128 (Version 8)
Quarter: 2019Q1

REPORT INFORMATION
  Report Type: Spontaneous
  Country: JP (occurrence: JP)
  Receive Date: 20170410
  Receipt Date: 20190223
  Transmission Date: 20190417
  Serious: Yes (Death, Hospitalization, Other)
  Sender: FDA-Public Use
  Company Number: JP-009507513-1703JPN003194J

PATIENT
  Age: 63 Year
  Sex: Male
  Weight: 52 kg

DRUGS (39)
  1. NEXIUM [Concomitant]
     Active Substance: ESOMEPRAZOLE MAGNESIUM
     Indication: GASTRITIS PROPHYLAXIS
     Dosage: 20 MG, QD
     Route: 048
     Dates: end: 20170526
  2. VFEND [Suspect]
     Active Substance: VORICONAZOLE
     Indication: PNEUMONIA
     Dosage: 300 MG, BID
     Route: 051
     Dates: start: 20170324, end: 20170324
  3. LOXOPROFEN [Concomitant]
     Active Substance: LOXOPROFEN
     Indication: PAIN
     Dosage: 60 MG, TID
     Route: 048
     Dates: end: 20170526
  4. OLOPATADINE HYDROCHLORIDE OD [Concomitant]
     Indication: RASH
     Dosage: 5 MG, BID
     Route: 048
     Dates: start: 20170322, end: 20170421
  5. RINDERON V [Concomitant]
     Active Substance: BETAMETHASONE VALERATE
     Indication: RASH
     Dosage: UNK DF, PRN
     Route: 051
     Dates: start: 20170322, end: 20170421
  6. URSODEOXYCHOLIC ACID [Concomitant]
     Active Substance: URSODIOL
     Indication: HEPATIC ENZYME INCREASED
     Dosage: 200 MG, TID
     Route: 048
     Dates: start: 20170330, end: 20170404
  7. CRAVIT [Concomitant]
     Active Substance: LEVOFLOXACIN
     Indication: PNEUMONIA BACTERIAL
     Dosage: 500 MG, QD
     Route: 041
     Dates: start: 20170518, end: 20170528
  8. PREDONINE [Concomitant]
     Active Substance: PREDNISOLONE
     Dosage: 20 MG, QD
     Route: 048
     Dates: start: 20170503, end: 20170517
  9. OXINORM (OXYCODONE HYDROCHLORIDE) [Suspect]
     Active Substance: OXYCODONE HYDROCHLORIDE
     Dosage: 5 MG, PRN
     Route: 048
     Dates: start: 20170516, end: 20170517
  10. ROZEREM [Concomitant]
     Active Substance: RAMELTEON
     Indication: INSOMNIA
     Dosage: 8 MG, QD
     Route: 048
     Dates: end: 20170321
  11. LUNESTA [Concomitant]
     Active Substance: ESZOPICLONE
     Indication: INSOMNIA
     Dosage: 2 MG, QD
     Route: 048
     Dates: start: 20170322, end: 20170501
  12. RANMARK [Suspect]
     Active Substance: DENOSUMAB
     Dosage: UNK
     Route: 051
     Dates: start: 20170106
  13. MAGMITT [Concomitant]
     Active Substance: MAGNESIUM OXIDE
     Indication: CONSTIPATION
     Dosage: 330 MG, TID
     Route: 048
     Dates: end: 20170526
  14. DENOTAS [Concomitant]
     Active Substance: CALCIUM CARBONATE\CHOLECALCIFEROL\MAGNESIUM CARBONATE
     Indication: HYPOCALCAEMIA
     Dosage: 2 DF, QD
     Route: 048
     Dates: start: 20170327, end: 20170405
  15. INDOMETACIN [Concomitant]
     Active Substance: INDOMETHACIN
     Indication: PAIN
     Dosage: 1 DF, QD
     Route: 062
     Dates: start: 20170419, end: 20170515
  16. EURODIN [Concomitant]
     Indication: INSOMNIA
     Dosage: 2 MG, QD
     Route: 048
     Dates: start: 20170502, end: 20170523
  17. FENTOS [Suspect]
     Active Substance: FENTANYL
     Indication: PAIN
     Dosage: 1 DF, QD
     Route: 062
     Dates: start: 20170511, end: 20170523
  18. NOVAMIN [Concomitant]
     Indication: ANTIEMETIC SUPPORTIVE CARE
     Dosage: 5 MG, TID
     Route: 048
     Dates: start: 20170511, end: 20170523
  19. PREDONINE [Concomitant]
     Active Substance: PREDNISOLONE
     Dosage: 40 MG, BID
     Route: 051
     Dates: start: 20170518, end: 20170528
  20. LOXOPROFEN [Concomitant]
     Active Substance: LOXOPROFEN
     Dosage: 60 MG, PRN
     Route: 048
     Dates: start: 20170322, end: 20170323
  21. MAXIPIME [Suspect]
     Active Substance: CEFEPIME HYDROCHLORIDE
     Indication: PNEUMONIA
     Dosage: 2 G, BID
     Route: 051
     Dates: start: 20170324, end: 20170405
  22. DOMPERIDONE [Concomitant]
     Active Substance: DOMPERIDONE
     Indication: VOMITING
     Dosage: 10 MG, PRN
     Route: 048
     Dates: start: 20170518, end: 20170518
  23. PREDONINE [Concomitant]
     Active Substance: PREDNISOLONE
     Indication: INTERSTITIAL LUNG DISEASE
     Dosage: 25 MG, QD
     Route: 051
     Dates: start: 20170331, end: 20170402
  24. PREDONINE [Concomitant]
     Active Substance: PREDNISOLONE
     Dosage: 50 MG, QD
     Route: 051
     Dates: start: 20170403, end: 20170407
  25. PREDONINE [Concomitant]
     Active Substance: PREDNISOLONE
     Indication: INTERSTITIAL LUNG DISEASE
     Dosage: 40 MG, QD
     Route: 048
     Dates: start: 20170408, end: 20170414
  26. PREDONINE [Concomitant]
     Active Substance: PREDNISOLONE
     Dosage: 30 MG, QD
     Route: 048
     Dates: start: 20170415, end: 20170421
  27. CODEINE PHOSPHATE HYDRATE [Concomitant]
     Active Substance: CODEINE PHOSPHATE
     Indication: ANTITUSSIVE THERAPY
     Dosage: 20 MG, TID
     Route: 048
     Dates: end: 20170523
  28. VFEND [Suspect]
     Active Substance: VORICONAZOLE
     Dosage: 200 MG, BID
     Route: 051
     Dates: start: 20170325, end: 20170405
  29. PREDONINE [Concomitant]
     Active Substance: PREDNISOLONE
     Dosage: 40 MG, QD
     Route: 048
     Dates: start: 20170518, end: 20170528
  30. OXINORM (OXYCODONE HYDROCHLORIDE) [Suspect]
     Active Substance: OXYCODONE HYDROCHLORIDE
     Indication: PAIN
     Dosage: 2.5 MG, PRN
     Route: 048
     Dates: end: 20170515
  31. ALENDRONATE [Concomitant]
     Active Substance: ALENDRONATE SODIUM
     Indication: OSTEOPOROSIS PROPHYLAXIS
     Dosage: 35 MG, QW
     Route: 048
     Dates: start: 20170406, end: 20170526
  32. CALONAL [Concomitant]
     Active Substance: ACETAMINOPHEN
     Indication: PAIN
     Dosage: 2 MG, QD
     Route: 048
     Dates: start: 20170502, end: 20170523
  33. OXYCODONE [Suspect]
     Active Substance: OXYCODONE
     Indication: PAIN
     Dosage: 5 MG, BID
     Route: 048
     Dates: start: 20170511, end: 20170517
  34. MORPHINE HYDROCHLORIDE HYDRATE [Concomitant]
     Active Substance: MORPHINE HYDROCHLORIDE
     Indication: PAIN
     Dosage: 30 MG, QD
     Route: 051
     Dates: start: 20170518, end: 20170523
  35. KEYTRUDA [Suspect]
     Active Substance: PEMBROLIZUMAB
     Indication: LUNG SQUAMOUS CELL CARCINOMA STAGE IV
     Dosage: 200 MG, Q3W
     Route: 041
     Dates: start: 20170322, end: 20170322
  36. REBAMIPIDE [Concomitant]
     Active Substance: REBAMIPIDE
     Indication: GASTRITIS PROPHYLAXIS
     Dosage: 100 MG, PRN
     Route: 048
     Dates: start: 20170322, end: 20170323
  37. ASTOMIN [Concomitant]
     Active Substance: DIMEMORFAN
     Indication: ANTITUSSIVE THERAPY
     Dosage: 20 MG, TID
     Route: 048
     Dates: start: 20170330, end: 20170516
  38. BACTRAMIN C [Concomitant]
     Indication: ANTIFUNGAL PROPHYLAXIS
     Dosage: 1 DF, QD
     Route: 048
     Dates: start: 20170406, end: 20170523
  39. PREDONINE [Concomitant]
     Active Substance: PREDNISOLONE
     Dosage: 25 MG, QD
     Route: 048
     Dates: start: 20170422, end: 20170502

REACTIONS (13)
  - Malignant neoplasm progression [None]
  - Interstitial lung disease [Recovering/Resolving]
  - Pneumonia bacterial [Not Recovered/Not Resolved]
  - Interstitial lung disease [Not Recovered/Not Resolved]
  - Disease progression [None]
  - Rash maculo-papular [Recovering/Resolving]
  - Pyrexia [Recovered/Resolved]
  - Gamma-glutamyltransferase increased [Recovering/Resolving]
  - Hypocalcaemia [Recovered/Resolved]
  - Vomiting [Recovering/Resolving]
  - Pneumonia [Recovered/Resolved]
  - Disease complication [None]
  - Respiratory failure [None]

NARRATIVE: CASE EVENT DATE: 20170322
